FAERS Safety Report 4508996-4 (Version None)
Quarter: 2004Q4

REPORT INFORMATION
  Report Type: 
  Country: None (occurrence: None)
  Receive Date: 20041122
  Receipt Date: 20041122
  Transmission Date: 20050328
  Serious: Yes (Other)
  Sender: FDA-Public Use
  Company Number: None

PATIENT
  Age: 87 Year
  Sex: Female
  Weight: 70.7611 kg

DRUGS (1)
  1. ALOCRIL 2% SINGL USE 0.4 ML ALLERGAN [Suspect]
     Dosage: ONE DROP ONE TIME AURICULAR
     Route: 001
     Dates: start: 20040505, end: 20040505

REACTIONS (2)
  - APPLICATION SITE PAIN [None]
  - EYE PAIN [None]
